FAERS Safety Report 7825111-X (Version None)
Quarter: 2011Q4

REPORT INFORMATION
  Report Type: 
  Country: None (occurrence: None)
  Receive Date: 20111019
  Receipt Date: 20110218
  Transmission Date: 20120403
  Serious: No
  Sender: FDA-Public Use
  Company Number: US-BRISTOL-MYERS SQUIBB COMPANY-15363666

PATIENT
  Age: 49 Year
  Sex: Female

DRUGS (2)
  1. AMLODIPINE [Suspect]
     Route: 048
  2. AVALIDE [Suspect]
     Indication: HYPERTENSION
     Dosage: 1 DF=300/12.5MG; ALSO TAKEN 300/25MG
     Route: 048
     Dates: start: 20070227

REACTIONS (3)
  - NAUSEA [None]
  - DYSPEPSIA [None]
  - ABDOMINAL DISCOMFORT [None]
